FAERS Safety Report 25524458 (Version 1)
Quarter: 2025Q3

REPORT INFORMATION
  Report Type: Spontaneous
  Country: CN (occurrence: CN)
  Receive Date: 20250707
  Receipt Date: 20250707
  Transmission Date: 20251020
  Serious: Yes (Hospitalization, Other)
  Sender: BAYER HEALTHCARE PHARMACEUTICALS INC.
  Company Number: CN-BAYER-2025A087823

PATIENT
  Age: 47 Year
  Sex: Female
  Weight: 60 kg

DRUGS (4)
  1. GLUCOBAY [Suspect]
     Active Substance: ACARBOSE
     Indication: Diabetes mellitus
     Dosage: 50 MG, TID
     Route: 048
     Dates: start: 20150601, end: 20250626
  2. METFORMIN HYDROCHLORIDE [Suspect]
     Active Substance: METFORMIN HYDROCHLORIDE
     Indication: Diabetes mellitus
     Dosage: 0.5 G, BID
     Route: 048
     Dates: start: 20150601, end: 20250626
  3. QUETIAPINE FUMARATE [Suspect]
     Active Substance: QUETIAPINE FUMARATE
     Indication: Depression
     Dosage: 0.1 MG, QD
     Route: 048
     Dates: start: 20250307, end: 20250626
  4. ESCITALOPRAM OXALATE [Suspect]
     Active Substance: ESCITALOPRAM OXALATE
     Indication: Depression
     Dosage: 20 MG, QD
     Route: 048
     Dates: start: 20250307, end: 20250626

REACTIONS (8)
  - Cholecystitis [None]
  - Abdominal pain upper [None]
  - Drug-induced liver injury [Unknown]
  - Nausea [None]
  - Abdominal distension [None]
  - Diarrhoea [None]
  - Vomiting [None]
  - Diverticulum intestinal [None]

NARRATIVE: CASE EVENT DATE: 20250609
